FAERS Safety Report 9899966 (Version 1)
Quarter: 2014Q1

REPORT INFORMATION
  Report Type: Not Available
  Country: US (occurrence: US)
  Receive Date: 20140214
  Receipt Date: 20140214
  Transmission Date: 20141002
  Serious: No
  Sender: FDA-Public Use
  Company Number: US-VIVUS-2013V1000853

PATIENT
  Age: 46 Year
  Sex: Female
  Weight: 72.64 kg

DRUGS (3)
  1. QSYMIA 7.5MG/46MG [Suspect]
     Indication: WEIGHT DECREASED
     Route: 048
     Dates: start: 201311
  2. QSYMIA 3.75MG/23MG [Suspect]
     Indication: WEIGHT DECREASED
     Route: 048
     Dates: start: 201310, end: 201310
  3. LOTREL [Concomitant]
     Indication: HYPERTENSION
     Dosage: 5MG-20MG
     Route: 048
     Dates: start: 2009

REACTIONS (1)
  - Diarrhoea [Recovering/Resolving]
